FAERS Safety Report 8241197-5 (Version None)
Quarter: 2012Q1

REPORT INFORMATION
  Report Type: 
  Country: None (occurrence: None)
  Receive Date: 20120309
  Receipt Date: 20101019
  Transmission Date: 20120608
  Serious: Yes (Other)
  Sender: FDA-Public Use
  Company Number: PHHY2010US70175

PATIENT
  Sex: Male

DRUGS (1)
  1. EXTAVIA [Suspect]
     Dosage: 0.25 ML, QOD, SUBCUTANEOUS
     Route: 058

REACTIONS (2)
  - HEMIPLEGIA [None]
  - MULTIPLE SCLEROSIS RELAPSE [None]
